FAERS Safety Report 6383944-3 (Version None)
Quarter: 2009Q4

REPORT INFORMATION
  Report Type: 
  Country: None (occurrence: None)
  Receive Date: 20091001
  Receipt Date: 20090921
  Transmission Date: 20100525
  Serious: Yes (Hospitalization)
  Sender: FDA-Public Use
  Company Number: FR-ELI_LILLY_AND_COMPANY-FR200908005520

PATIENT
  Age: 72 Year
  Sex: Female
  Weight: 85 kg

DRUGS (7)
  1. FORTEO [Suspect]
     Indication: OSTEOPOROSIS
     Dosage: 20 UG, DAILY (1/D)
     Route: 058
     Dates: start: 20080926
  2. PLAVIX [Concomitant]
     Dosage: 75 MG, DAILY (1/D)
     Route: 048
  3. CARDEGIC [Concomitant]
     Dosage: 100 MG, DAILY (1/D)
     Route: 048
  4. TAHOR [Concomitant]
     Dosage: 20 MG, DAILY (1/D)
     Route: 048
  5. ADANCOR [Concomitant]
     Dosage: 10 MG, DAILY (1/D)
     Route: 048
  6. CORTANCYL [Concomitant]
     Dosage: 1 MG, 3/D
     Route: 048
  7. SERETIDE [Concomitant]
     Dosage: 250 MG, 2/D
     Route: 055

REACTIONS (3)
  - FALL [None]
  - WEIGHT INCREASED [None]
  - WRIST FRACTURE [None]
